FAERS Safety Report 7639178-5 (Version None)
Quarter: 2011Q3

REPORT INFORMATION
  Report Type: 
  Country: None (occurrence: None)
  Receive Date: 20110721
  Receipt Date: 20110708
  Transmission Date: 20111222
  Serious: Yes (Hospitalization)
  Sender: FDA-Public Use
  Company Number: 1000021393

PATIENT
  Age: 84 Year
  Sex: Female

DRUGS (18)
  1. CITALOPRAM HYDROBROMIDE [Suspect]
     Dosage: 20 MG (20 MG, 1 IN 1 D), ORAL
     Route: 048
     Dates: start: 20100623
  2. LEVOTHYROX (LEVOTHYROXINE SODIUM) (TABLETS) (LEVOTHYROXINE SODIUM) [Concomitant]
  3. MEMANTINE HYDROCHLORIDE [Suspect]
     Indication: DEMENTIA ALZHEIMER'S TYPE
     Dosage: 10 MG (10 MG, 1 IN 1 D), ORAL
     Route: 048
     Dates: start: 20100201, end: 20100623
  4. HALDOL [Suspect]
     Dosage: UNKNOWN DOSE
     Dates: end: 20100201
  5. ARICEPT [Suspect]
     Indication: DEMENTIA ALZHEIMER'S TYPE
     Dosage: ORAL
     Route: 048
     Dates: end: 20100201
  6. ATARAX [Suspect]
     Dosage: 75 MG (25 MG, 3 IN 1 D), ORAL
     Route: 048
     Dates: start: 20100201, end: 20100623
  7. VALIUM [Suspect]
     Dosage: 15 MG (5 MG, 3 IN 1 D), ORAL
     Route: 048
     Dates: end: 20100622
  8. MEMANTINE HYDROCHLORIDE [Suspect]
     Indication: DEMENTIA ALZHEIMER'S TYPE
     Dosage: 20 MG (10 MG, 2 IN 1 D), ORAL
     Route: 048
     Dates: end: 20100219
  9. TARDYFERON (TARDYFERON) (TABLETS) (TARDYFERON) [Concomitant]
  10. LEVEMIR [Concomitant]
  11. VALIUM [Suspect]
     Dosage: 10 MG (10 MG, 1 IN 1 D), ORAL
     Route: 048
     Dates: start: 20100623
  12. MEPRONIZINE (MEPRONIZINE) (MEPRONIZINE) [Concomitant]
  13. HUMALOG [Concomitant]
  14. ARICEPT [Suspect]
     Indication: DEMENTIA ALZHEIMER'S TYPE
     Dosage: 10 MG (5 MG, 2 IN 1 D), ORAL
     Route: 048
     Dates: start: 20100201, end: 20100623
  15. THERALENE (ALIMEMAZINE TARTRATE) (DROPS) (ALIMEMAZINE TARTRATE) [Concomitant]
  16. CITALOPRAM HYDROBROMIDE [Suspect]
     Dosage: 40 MG (20 MG, 2 IN 1 D), ORAL
     Route: 048
     Dates: end: 20100101
  17. HALDOL [Suspect]
     Dosage: 12 GTT (12 GTT, 1 IN 1 D) 10 GTT (10 GTT, 1 IN 1 D)
     Dates: start: 20100201, end: 20100622
  18. HALDOL [Suspect]
     Dosage: 12 GTT (12 GTT, 1 IN 1 D) 10 GTT (10 GTT, 1 IN 1 D)
     Dates: start: 20100623

REACTIONS (10)
  - GENERAL PHYSICAL HEALTH DETERIORATION [None]
  - DECREASED APPETITE [None]
  - SOMNOLENCE [None]
  - DEHYDRATION [None]
  - BLOOD SODIUM DECREASED [None]
  - ABNORMAL BEHAVIOUR [None]
  - FALL [None]
  - AUTONOMIC NERVOUS SYSTEM IMBALANCE [None]
  - DISTURBANCE IN ATTENTION [None]
  - AGITATION [None]
